FAERS Safety Report 9034554 (Version 2)
Quarter: 2013Q2

REPORT INFORMATION
  Report Type: Spontaneous
  Country: US (occurrence: None)
  Receive Date: 20121218
  Receipt Date: 20130514
  Transmission Date: 20140414
  Serious: Yes (Death)
  Sender: FDA-Public Use
  Company Number: 2012PROUSA02370

PATIENT
  Age: 67 Year
  Sex: Male
  Weight: 73.7 kg

DRUGS (12)
  1. BENICAR HCT (HYDROCHLOROTHIAZIDE, OLMESARTAN MEDOXOMIL) [Concomitant]
  2. PAROXETINE HCL (PAROXETINE HYDROCHLORIDE) [Concomitant]
  3. VYTORIN (EZETIMIBE, SIMVASTATIN) [Concomitant]
  4. PROVENGE (SIPULEUCEL-T) SUSPENSION [Suspect]
     Indication: PROSTATE CANCER METASTATIC
     Route: 042
     Dates: start: 20120817, end: 20120817
  5. ALPRAZOLAM (ALPRAZOLAM) [Concomitant]
  6. BICALUTAMIDE (BICALUTAMIDE) [Concomitant]
  7. COMBIVENT (IPRATROPIUM BROMIDE, SALBUTAMOL SULFATE) [Concomitant]
  8. VALSARTAN (VALSARTAN) [Concomitant]
  9. LEUPROLIDE (LEUPROLIDE) [Concomitant]
  10. MULTIPLE VITAMINS (ASCORBIC ACID, ERGOCALCIFEROL, FOLIC ACID, RETINOL, TOCOPHEROL, VITAMIN B NOS) [Concomitant]
  11. DENOSUMAB (DENOSUMAB) [Concomitant]
  12. SIMVASTATIN (SIMVASTATIN) [Concomitant]

REACTIONS (12)
  - Myocardial infarction [None]
  - Gastrointestinal haemorrhage [None]
  - Cerebrovascular accident [None]
  - Depressed level of consciousness [None]
  - Depressed level of consciousness [None]
  - Renal failure acute [None]
  - Metabolic acidosis [None]
  - Embolic cerebral infarction [None]
  - Blood glucose increased [None]
  - Aspartate aminotransferase increased [None]
  - Platelet count decreased [None]
  - Dehydration [None]
